FAERS Safety Report 16169353 (Version 5)
Quarter: 2019Q2

REPORT INFORMATION
  Report Type: Report from Study
  Country: None (occurrence: CA)
  Receive Date: 20190408
  Receipt Date: 20190531
  Transmission Date: 20190711
  Serious: Yes (Hospitalization)
  Sender: FDA-Public Use
  Company Number: CA-ABBVIE-19K-028-2726850-00

PATIENT
  Age: 66 Year
  Sex: Male
  Weight: 78.5 kg

DRUGS (3)
  1. VENETOCLAX. [Suspect]
     Active Substance: VENETOCLAX
     Indication: CHRONIC LYMPHOCYTIC LEUKAEMIA
     Route: 048
     Dates: start: 20190326, end: 20190401
  2. VENETOCLAX. [Suspect]
     Active Substance: VENETOCLAX
     Route: 048
     Dates: start: 20190414, end: 20190415
  3. VENETOCLAX. [Suspect]
     Active Substance: VENETOCLAX
     Route: 048
     Dates: start: 20190430

REACTIONS (6)
  - Neutrophil count abnormal [Recovered/Resolved]
  - Nasal congestion [Unknown]
  - Monocyte count decreased [Unknown]
  - Neutrophil count decreased [Recovered/Resolved]
  - Lower respiratory tract infection [Recovering/Resolving]
  - Pneumonia [Unknown]

NARRATIVE: CASE EVENT DATE: 2019
